FAERS Safety Report 6836692-7 (Version None)
Quarter: 2010Q3

REPORT INFORMATION
  Report Type: 
  Country: None (occurrence: None)
  Receive Date: 20100713
  Receipt Date: 20100702
  Transmission Date: 20110219
  Serious: Yes (Hospitalization, Other)
  Sender: FDA-Public Use
  Company Number: US-JNJCH-2010015355

PATIENT
  Age: 18 Month
  Sex: Male
  Weight: 16.3 kg

DRUGS (3)
  1. BENADRYL [Suspect]
     Indication: HYPERSENSITIVITY
     Dosage: TEXT:UNKNOWN
     Route: 048
  2. CONCENTRATED TYLENOL INFANT DROPS [Suspect]
     Indication: PYREXIA
     Dosage: TEXT:1.6MLS EVERY 4-6 HOURS
     Route: 048
  3. MOTRIN [Suspect]
     Indication: PYREXIA
     Dosage: TEXT:UNKNOWN
     Route: 048

REACTIONS (11)
  - BACTERIAL INFECTION [None]
  - BREATH ODOUR [None]
  - CONDITION AGGRAVATED [None]
  - DECREASED APPETITE [None]
  - HYPERSENSITIVITY [None]
  - OROPHARYNGEAL BLISTERING [None]
  - PRODUCT QUALITY ISSUE [None]
  - PYREXIA [None]
  - TRANSMISSION OF AN INFECTIOUS AGENT VIA A MEDICINAL PRODUCT [None]
  - VIRAL INFECTION [None]
  - WEIGHT DECREASED [None]
